FAERS Safety Report 4405639-5 (Version None)
Quarter: 2004Q3

REPORT INFORMATION
  Report Type: 
  Country: None (occurrence: None)
  Receive Date: 20040723
  Receipt Date: 20031027
  Transmission Date: 20050211
  Serious: No
  Sender: FDA-Public Use
  Company Number: US-GLAXOSMITHKLINE-A0431769A

PATIENT
  Age: 74 Year
  Sex: Male

DRUGS (3)
  1. AVANDIA [Suspect]
     Dosage: 4 PER DAY
     Route: 048
     Dates: start: 20031021
  2. CARDIZEM [Concomitant]
  3. DERMADEX [Concomitant]

REACTIONS (1)
  - BLOOD GLUCOSE INCREASED [None]
